FAERS Safety Report 20024926 (Version 3)
Quarter: 2022Q1

REPORT INFORMATION
  Report Type: Other
  Country: US (occurrence: None)
  Receive Date: 20211102
  Receipt Date: 20220208
  Transmission Date: 20220424
  Serious: Yes (Death)
  Sender: FDA-Public Use
  Company Number: US-ROCHE-2949489

PATIENT
  Age: 60 Year
  Sex: Male
  Weight: 65.5 kg

DRUGS (3)
  1. ALECENSA [Suspect]
     Active Substance: ALECTINIB HYDROCHLORIDE
     Indication: Lung neoplasm malignant
     Dosage: TAKE 4 CAPSULE(S) BY MOUTH TWICE A DAY WITH FOOD, DOT-23-AUG-2021,  25-AUG-2021
     Route: 048
  2. TYLENOL [Concomitant]
     Active Substance: ACETAMINOPHEN
     Indication: Pain
     Dosage: AS NEEDED
     Route: 048
  3. IBUPROFEN [Concomitant]
     Active Substance: IBUPROFEN
     Indication: Pain
     Route: 048

REACTIONS (1)
  - Death [Fatal]

NARRATIVE: CASE EVENT DATE: 20211020
